FAERS Safety Report 5140682-2 (Version None)
Quarter: 2006Q4

REPORT INFORMATION
  Report Type: 
  Country: None (occurrence: None)
  Receive Date: 20061025
  Receipt Date: 20061009
  Transmission Date: 20070319
  Serious: Yes (Hospitalization)
  Sender: FDA-Public Use
  Company Number: 8019568

PATIENT
  Age: 53 Year
  Sex: Female

DRUGS (4)
  1. PREDNISOLONE [Suspect]
     Dosage: 20 MG PO
     Route: 048
     Dates: start: 20060904, end: 20060910
  2. FLUOXETINE [Suspect]
     Indication: DEPRESSION
     Dosage: 20 MG PO
     Route: 048
     Dates: start: 20060731, end: 20060818
  3. FLUOXETINE [Suspect]
     Indication: DEPRESSION
     Dosage: PO
     Route: 048
     Dates: start: 20060817, end: 20060830
  4. ACETAMINOPHEN [Concomitant]

REACTIONS (2)
  - POLYARTHRITIS [None]
  - RASH [None]
